FAERS Safety Report 23885815 (Version 3)
Quarter: 2024Q3

REPORT INFORMATION
  Report Type: Spontaneous
  Country: US (occurrence: None)
  Receive Date: 20240522
  Receipt Date: 20240805
  Transmission Date: 20241017
  Serious: Yes (Other)
  Sender: ASTRAZENECA
  Company Number: 2024A113465

PATIENT
  Sex: Male

DRUGS (2)
  1. BYDUREON BCISE [Suspect]
     Active Substance: EXENATIDE
  2. BYDUREON [Suspect]
     Active Substance: EXENATIDE

REACTIONS (6)
  - Cataract [Unknown]
  - Injection site mass [Unknown]
  - Injection site haemorrhage [Unknown]
  - Injection site pain [Unknown]
  - Drug dose omission by device [Unknown]
  - Device leakage [Unknown]
